FAERS Safety Report 5922658-8 (Version None)
Quarter: 2008Q3

REPORT INFORMATION
  Report Type: 
  Country: None (occurrence: None)
  Receive Date: 20080909
  Receipt Date: 20070717
  Transmission Date: 20090109
  Serious: Yes (Hospitalization)
  Sender: FDA-Public Use
  Company Number: 163-20785-07020061 (1)

PATIENT
  Age: 46 Year
  Sex: Female

DRUGS (9)
  1. THALOMID [Suspect]
     Indication: SYSTEMIC LUPUS ERYTHEMATOSUS
     Dosage: 50 MG, 1 IN 1 D, ORAL
     Route: 048
     Dates: start: 20010101, end: 20020101
  2. CELLCEPT [Concomitant]
  3. PREDNISONE [Concomitant]
  4. PROGRAF [Concomitant]
  5. CARBAMAZEPINE [Concomitant]
  6. PLAQUENIL [Concomitant]
  7. ATENOLOL [Concomitant]
  8. FOLIC ACID [Concomitant]
  9. OSCAL-D (CALCIUM D3 ^STADA^) [Concomitant]

REACTIONS (2)
  - BLOOD CREATININE [None]
  - BLOOD CREATININE INCREASED [None]
